FAERS Safety Report 11178262 (Version 11)
Quarter: 2017Q4

REPORT INFORMATION
  Report Type: Spontaneous
  Country: US (occurrence: US)
  Receive Date: 20150610
  Receipt Date: 20171121
  Transmission Date: 20180320
  Serious: Yes (Hospitalization, Disabling, Other)
  Sender: FDA-Public Use
  Company Number: US-009507513-1506USA005339

PATIENT
  Sex: Female
  Weight: 85.71 kg

DRUGS (6)
  1. FOSAMAX [Suspect]
     Active Substance: ALENDRONATE SODIUM
     Indication: OSTEOPOROSIS
     Dosage: 70 MG, QW
     Route: 048
     Dates: start: 200009, end: 200802
  2. CALCIUM (UNSPECIFIED) [Concomitant]
     Active Substance: CALCIUM
     Indication: PRODUCT USED FOR UNKNOWN INDICATION
     Dosage: 600 MG, UNK
     Route: 065
     Dates: start: 1990
  3. ALENDRONATE SODIUM. [Suspect]
     Active Substance: ALENDRONATE SODIUM
     Indication: OSTEOPOROSIS
     Dosage: 70 MG, QW
     Route: 065
     Dates: start: 200802, end: 201301
  4. ALENDRONATE SODIUM. [Suspect]
     Active Substance: ALENDRONATE SODIUM
     Indication: OSTEOPENIA
  5. ALENDRONATE SODIUM. [Suspect]
     Active Substance: ALENDRONATE SODIUM
     Indication: OSTEOPENIA
  6. ALENDRONATE SODIUM. [Suspect]
     Active Substance: ALENDRONATE SODIUM
     Indication: OSTEOPOROSIS
     Dosage: 70 MG, UNK
     Route: 065
     Dates: start: 20080129, end: 20121214

REACTIONS (29)
  - Bone pain [Unknown]
  - Fall [Unknown]
  - Bursitis [Unknown]
  - Neck surgery [Unknown]
  - Cystocele repair [Unknown]
  - Osteoarthritis [Unknown]
  - Vulvovaginal pruritus [Unknown]
  - Femur fracture [Unknown]
  - Osteoporosis [Not Recovered/Not Resolved]
  - Vitamin D deficiency [Unknown]
  - Pelvic floor muscle weakness [Unknown]
  - Hypocalcaemia [Unknown]
  - Benign uterine neoplasm [Unknown]
  - Spinal fusion surgery [Unknown]
  - Pain in extremity [Unknown]
  - Low turnover osteopathy [Not Recovered/Not Resolved]
  - Hyperlipidaemia [Unknown]
  - Femur fracture [Recovered/Resolved]
  - Rheumatoid arthritis [Unknown]
  - Cystocele repair [Unknown]
  - Constipation [Unknown]
  - Gastrooesophageal reflux disease [Not Recovered/Not Resolved]
  - Foot fracture [Unknown]
  - Anaemia [Unknown]
  - Musculoskeletal stiffness [Unknown]
  - Benign breast neoplasm [Unknown]
  - Lower limb fracture [Unknown]
  - Peptic ulcer [Unknown]
  - Musculoskeletal pain [Unknown]

NARRATIVE: CASE EVENT DATE: 2002
